FAERS Safety Report 16022631 (Version 1)
Quarter: 2019Q1

REPORT INFORMATION
  Report Type: Spontaneous
  Country: US (occurrence: US)
  Receive Date: 20190301
  Receipt Date: 20190301
  Transmission Date: 20190418
  Serious: Yes (Hospitalization)
  Sender: FDA-Public Use
  Company Number: US-VERTEX PHARMACEUTICALS-2019-001671

PATIENT
  Age: 15 Year
  Sex: Female

DRUGS (8)
  1. BUPROPION HCL [Concomitant]
     Active Substance: BUPROPION HYDROCHLORIDE
  2. OSELTAMIVIR [Concomitant]
     Active Substance: OSELTAMIVIR
  3. PULMOZYME [Suspect]
     Active Substance: DORNASE ALFA
     Indication: CYSTIC FIBROSIS
     Dosage: 2.5 MG, QD
     Route: 055
     Dates: start: 20161123
  4. SULFAMETHOXAZOLE AND TRIMETHOPRIM [Concomitant]
     Active Substance: SULFAMETHOXAZOLE\TRIMETHOPRIM
  5. ARIPIPRAZOLE. [Concomitant]
     Active Substance: ARIPIPRAZOLE
  6. TOBI [Concomitant]
     Active Substance: TOBRAMYCIN
  7. SERTRALINE [Concomitant]
     Active Substance: SERTRALINE HYDROCHLORIDE
  8. ORKAMBI [Suspect]
     Active Substance: IVACAFTOR\LUMACAFTOR
     Indication: CYSTIC FIBROSIS
     Dosage: 2 DOSAGE FORM, BID
     Route: 048
     Dates: start: 20150725

REACTIONS (1)
  - Pulmonary function test decreased [Not Recovered/Not Resolved]

NARRATIVE: CASE EVENT DATE: 201901
